FAERS Safety Report 14582119 (Version 6)
Quarter: 2023Q2

REPORT INFORMATION
  Report Type: Spontaneous
  Country: PT (occurrence: PT)
  Receive Date: 20180228
  Receipt Date: 20230405
  Transmission Date: 20230721
  Serious: Yes (Other)
  Sender: FDA-Public Use
  Company Number: PT-PFIZER INC-2018039963

PATIENT
  Age: 67 Year
  Sex: Female

DRUGS (6)
  1. FLUOROURACIL [Suspect]
     Active Substance: FLUOROURACIL
     Indication: Invasive ductal breast carcinoma
     Dosage: UNK UNK, EVERY 3 WEEKS, 3 CYCLES
     Route: 065
     Dates: start: 2014
  2. DOCETAXEL [Suspect]
     Active Substance: DOCETAXEL
     Indication: Invasive ductal breast carcinoma
     Dosage: UNK UNK, EVERY 3 WEEKS (3 CYCLES)
     Route: 065
     Dates: start: 2014
  3. DOCETAXEL [Suspect]
     Active Substance: DOCETAXEL
     Dosage: THREE SUBSEQUENT CYCLES (INFUSION), Q3W
     Route: 065
  4. CYCLOPHOSPHAMIDE [Suspect]
     Active Substance: CYCLOPHOSPHAMIDE
     Indication: Invasive ductal breast carcinoma
     Dosage: UNK UNK, EVERY 3 WEEKS, 3 CYCLES
     Route: 065
     Dates: start: 2014
  5. ANASTROZOLE [Suspect]
     Active Substance: ANASTROZOLE
     Indication: Invasive ductal breast carcinoma
     Dosage: 1 MG,QD
     Route: 048
  6. EPIRUBICIN HYDROCHLORIDE [Suspect]
     Active Substance: EPIRUBICIN HYDROCHLORIDE
     Indication: Invasive ductal breast carcinoma
     Dosage: UNK UNK, EVERY 3 WEEKS, 3 CYCLES
     Dates: start: 2014

REACTIONS (5)
  - Psoriasis [Recovered/Resolved]
  - Rash [Recovered/Resolved]
  - Skin exfoliation [Recovered/Resolved]
  - Skin plaque [Recovering/Resolving]
  - Skin lesion [Recovering/Resolving]

NARRATIVE: CASE EVENT DATE: 20140101
